FAERS Safety Report 8239341-9 (Version None)
Quarter: 2012Q1

REPORT INFORMATION
  Report Type: 
  Country: None (occurrence: None)
  Receive Date: 20120326
  Receipt Date: 20120319
  Transmission Date: 20120608
  Serious: Yes (Hospitalization)
  Sender: FDA-Public Use
  Company Number: 2012-000423

PATIENT
  Age: 84 Year
  Sex: Female
  Weight: 54.4 kg

DRUGS (6)
  1. ANTIHYPERTENSIVES [Concomitant]
  2. ACTONEL [Suspect]
     Indication: OSTEOPOROSIS
     Dosage: 150MG, ONCE A MONTH, ORAL
     Route: 048
     Dates: start: 20100601
  3. ALL OTHER THERAPEUTIC PRODUCTS [Concomitant]
  4. NAPROXEN (ALEVE) [Suspect]
     Indication: ULCER
     Dosage: ORAL
     Route: 048
     Dates: end: 20120101
  5. NAPROXEN (ALEVE) [Suspect]
     Indication: ANALGESIC THERAPY
     Dosage: ORAL
     Route: 048
     Dates: end: 20120101
  6. NAPROXEN (ALEVE) [Suspect]
     Indication: INTERVERTEBRAL DISC DISORDER
     Dosage: ORAL
     Route: 048
     Dates: end: 20120101

REACTIONS (9)
  - VOMITING [None]
  - ANAEMIA [None]
  - NAUSEA [None]
  - INCORRECT DOSE ADMINISTERED [None]
  - REGURGITATION [None]
  - SELF-MEDICATION [None]
  - OEDEMA [None]
  - GASTROOESOPHAGEAL REFLUX DISEASE [None]
  - GASTRIC ULCER HAEMORRHAGE [None]
